FAERS Safety Report 21352857 (Version 1)
Quarter: 2022Q3

REPORT INFORMATION
  Report Type: Spontaneous
  Country: FR (occurrence: FR)
  Receive Date: 20220920
  Receipt Date: 20220920
  Transmission Date: 20221027
  Serious: Yes (Hospitalization)
  Sender: FDA-Public Use
  Company Number: None

PATIENT
  Age: 49 Year
  Sex: Female

DRUGS (6)
  1. LEVETIRACETAM [Suspect]
     Active Substance: LEVETIRACETAM
     Indication: Seizure prophylaxis
     Dosage: UNIT DOSE : 250 MG  , FREQUENCY TIME : 1 DAYS , DURATION : 11 DAYS
     Dates: start: 20220622, end: 20220703
  2. PREVNAR 13 [Suspect]
     Active Substance: PNEUMOCOCCAL 13-VALENT CONJUGATE VACCINE
     Indication: Antibiotic prophylaxis
     Dosage: UNIT DOSE : 2 DF , DURATION : 14 DAYS
     Dates: start: 20220622, end: 20220706
  3. OXICONAZOLE NITRATE [Suspect]
     Active Substance: OXICONAZOLE NITRATE
     Indication: Antifungal treatment
     Dosage: CREAM IN A TUBE , FORM STRENGTH : 1 PERCENT , UNIT DOSE : 1 PERCENT  , FREQUENCY TIME : 8 HOUR  , DU
     Dates: start: 20220703, end: 20220707
  4. XIGDUO XR [Suspect]
     Active Substance: DAPAGLIFLOZIN PROPANEDIOL\METFORMIN HYDROCHLORIDE
     Indication: Diabetes mellitus
     Dosage: 5 MG/1000 MG ,UNIT DOSE : 1 DF  , FREQUENCY TIME : 12 HOUR  , DURATION : 8 DAY
     Dates: start: 20220705, end: 20220713
  5. TOUJEO [Suspect]
     Active Substance: INSULIN GLARGINE
     Indication: Diabetes mellitus
     Dosage: DURATION : 6 DAYS
     Dates: start: 20220701, end: 20220707
  6. LANSOPRAZOLE [Suspect]
     Active Substance: LANSOPRAZOLE
     Indication: Gastrooesophageal reflux disease
     Dosage: UNIT DOSE : 1.5 MG   , FREQUENCY TIME : 1 DAY  , DURATION : 8 DAY
     Dates: start: 20220629, end: 20220707

REACTIONS (1)
  - Rash papular [Recovering/Resolving]

NARRATIVE: CASE EVENT DATE: 20220708
